FAERS Safety Report 8442995-5 (Version None)
Quarter: 2012Q2

REPORT INFORMATION
  Report Type: 
  Country: None (occurrence: None)
  Receive Date: 20120615
  Receipt Date: 20120606
  Transmission Date: 20120825
  Serious: Yes (Hospitalization)
  Sender: FDA-Public Use
  Company Number: FR-FRI-1000031408

PATIENT
  Sex: Male

DRUGS (4)
  1. IMOVANE [Concomitant]
  2. ESCITALOPRAM [Suspect]
     Dosage: 10 MG
     Route: 048
  3. OXAZEPAM [Concomitant]
  4. BACLOFEN [Concomitant]
     Indication: MULTIPLE SCLEROSIS

REACTIONS (1)
  - IMPULSIVE BEHAVIOUR [None]
